FAERS Safety Report 4644943-2 (Version None)
Quarter: 2005Q2

REPORT INFORMATION
  Report Type: 
  Country: None (occurrence: None)
  Receive Date: 20050422
  Receipt Date: 20050411
  Transmission Date: 20051028
  Serious: Yes (Life-Threatening)
  Sender: FDA-Public Use
  Company Number: 2005057907

PATIENT
  Age: 60 Year
  Sex: Female
  Weight: 60 kg

DRUGS (1)
  1. MAGNEX (SULBACTAM, CEFOPERAZONE) [Suspect]
     Indication: NECROTISING FASCIITIS
     Dosage: 2 GRAM (1 GRAM, BID), INTRAVENOUS
     Route: 042

REACTIONS (4)
  - INTERNATIONAL NORMALISED RATIO INCREASED [None]
  - POST PROCEDURAL HAEMORRHAGE [None]
  - PROTHROMBIN TIME PROLONGED [None]
  - SKIN GRAFT [None]
